FAERS Safety Report 15136129 (Version 1)
Quarter: 2018Q3

REPORT INFORMATION
  Report Type: Spontaneous
  Country: CA (occurrence: CA)
  Receive Date: 20180617
  Receipt Date: 20180617
  Transmission Date: 20181010
  Serious: No
  Sender: FDA-Public Use
  Company Number: None

PATIENT
  Age: 21 Year
  Sex: Male
  Weight: 94.5 kg

DRUGS (5)
  1. WELLBUTRIN [Concomitant]
     Active Substance: BUPROPION HYDROCHLORIDE
  2. XANAX [Concomitant]
     Active Substance: ALPRAZOLAM
  3. TOPAMAX [Concomitant]
     Active Substance: TOPIRAMATE
  4. CYMBALTA [Suspect]
     Active Substance: DULOXETINE HYDROCHLORIDE
     Indication: DEPRESSION
  5. DEPLIN [Concomitant]
     Active Substance: LEVOMEFOLATE CALCIUM

REACTIONS (12)
  - Anger [None]
  - Mood swings [None]
  - Irritability [None]
  - Apathy [None]
  - Aggression [None]
  - Confusional state [None]
  - Hostility [None]
  - Thinking abnormal [None]
  - Paranoia [None]
  - Memory impairment [None]
  - Personality change [None]
  - Agitation [None]

NARRATIVE: CASE EVENT DATE: 20180227
